FAERS Safety Report 6590769-2 (Version None)
Quarter: 2010Q1

REPORT INFORMATION
  Report Type: 
  Country: None (occurrence: None)
  Receive Date: 20100219
  Receipt Date: 20100203
  Transmission Date: 20100710
  Serious: Yes (Other)
  Sender: FDA-Public Use
  Company Number: CA-BAYER-200936900NA

PATIENT
  Age: 78 Year
  Sex: Male
  Weight: 88 kg

DRUGS (14)
  1. SORAFENIB [Suspect]
     Indication: HEPATIC NEOPLASM MALIGNANT
     Dosage: TOTAL DAILY DOSE: 800 MG  UNIT DOSE: 200 MG
     Route: 048
     Dates: start: 20090909, end: 20091006
  2. SORAFENIB [Suspect]
     Dosage: TOTAL DAILY DOSE: 800 MG  UNIT DOSE: 200 MG
     Route: 048
     Dates: start: 20091007, end: 20091019
  3. DOXORUBICIN [Suspect]
     Indication: HEPATIC NEOPLASM MALIGNANT
     Dosage: CYCLE 1
     Route: 013
     Dates: start: 20090915, end: 20090915
  4. WARFARIN [Concomitant]
     Indication: ATRIAL FIBRILLATION
     Route: 048
     Dates: start: 20040101
  5. GLUCONORM [Concomitant]
     Indication: TYPE 2 DIABETES MELLITUS
     Route: 048
     Dates: start: 20040101
  6. METOPROLOL TARTRATE [Concomitant]
     Indication: HYPERTENSION
     Route: 048
     Dates: start: 20010101
  7. DIOVAN [Concomitant]
     Indication: HYPERTENSION
     Route: 048
     Dates: start: 20040101
  8. NORVASC [Concomitant]
     Indication: HYPERTENSION
     Route: 048
     Dates: start: 19930101
  9. ALTACE [Concomitant]
     Indication: HYPERTENSION
     Route: 048
     Dates: start: 20040101
  10. INDAPAMIDE [Concomitant]
     Indication: HYPERTENSION
     Route: 048
     Dates: start: 20050101
  11. ELTROXIN [Concomitant]
     Indication: HYPOTHYROIDISM
     Route: 048
     Dates: start: 20020101
  12. TIMOLOL MALEATE [Concomitant]
     Indication: GLAUCOMA
     Dosage: BOTH EYES
     Route: 047
     Dates: start: 20080101
  13. LUMIGAN [Concomitant]
     Indication: GLAUCOMA
     Route: 047
     Dates: start: 20080101
  14. REPAGLINIDE [Concomitant]
     Indication: TYPE 2 DIABETES MELLITUS
     Route: 048
     Dates: start: 20091104

REACTIONS (3)
  - FEMORAL PULSE DECREASED [None]
  - HYPOAESTHESIA [None]
  - PAIN IN EXTREMITY [None]
